FAERS Safety Report 23141592 (Version 3)
Quarter: 2024Q1

REPORT INFORMATION
  Report Type: Report from Study
  Country: US (occurrence: US)
  Receive Date: 20231103
  Receipt Date: 20240216
  Transmission Date: 20240409
  Serious: No
  Sender: FDA-Public Use
  Company Number: US-ALXN-A202308351

PATIENT
  Sex: Male

DRUGS (1)
  1. SOLIRIS [Suspect]
     Active Substance: ECULIZUMAB
     Indication: Myasthenia gravis
     Dosage: UNK
     Route: 065

REACTIONS (9)
  - Peroneal nerve palsy [Unknown]
  - Intervertebral disc protrusion [Unknown]
  - Drug ineffective [Unknown]
  - Muscular weakness [Unknown]
  - Feeling abnormal [Unknown]
  - Memory impairment [Unknown]
  - Dysstasia [Unknown]
  - Fatigue [Not Recovered/Not Resolved]
  - Diarrhoea [Not Recovered/Not Resolved]
